FAERS Safety Report 10504131 (Version 2)
Quarter: 2014Q4

REPORT INFORMATION
  Report Type: Spontaneous
  Country: US (occurrence: US)
  Receive Date: 20141008
  Receipt Date: 20141008
  Transmission Date: 20150528
  Serious: No
  Sender: FDA-Public Use
  Company Number: US-BEH-2014040057

PATIENT
  Sex: Male
  Weight: 45 kg

DRUGS (12)
  1. RANITIDINE [Concomitant]
     Active Substance: RANITIDINE\RANITIDINE HYDROCHLORIDE
  2. FLINTSTONES CHEWABLES [Concomitant]
  3. SODIUM CHLORIDE. [Concomitant]
     Active Substance: SODIUM CHLORIDE
  4. LIDOCAINE/PRILOCAINE [Concomitant]
  5. EPIPEN [Concomitant]
     Active Substance: EPINEPHRINE
  6. NAPROXEN. [Concomitant]
     Active Substance: NAPROXEN
  7. VITAMIN D [Concomitant]
     Active Substance: CHOLECALCIFEROL
  8. PRIVIGEN [Suspect]
     Active Substance: HUMAN IMMUNOGLOBULIN G
     Indication: MULTIPLE SCLEROSIS
     Dosage: OVER 8 HOURS
     Route: 042
  9. DIPHENHYDRAMINE [Concomitant]
     Active Substance: DIPHENHYDRAMINE
  10. ACETAMINOPHEN. [Concomitant]
     Active Substance: ACETAMINOPHEN
  11. HEPARIN [Concomitant]
     Active Substance: HEPARIN SODIUM
  12. MIRALAX [Concomitant]
     Active Substance: POLYETHYLENE GLYCOL 3350

REACTIONS (1)
  - Influenza like illness [Unknown]
